FAERS Safety Report 4754667-9 (Version None)
Quarter: 2005Q3

REPORT INFORMATION
  Report Type: 
  Country: None (occurrence: None)
  Receive Date: 20050829
  Receipt Date: 20050309
  Transmission Date: 20060218
  Serious: Yes (Hospitalization, Other)
  Sender: FDA-Public Use
  Company Number: US-MERCK-0503USA01981

PATIENT
  Age: 51 Year
  Sex: Male
  Weight: 207 kg

DRUGS (22)
  1. VIOXX [Suspect]
     Indication: OSTEOARTHRITIS
     Route: 048
     Dates: start: 20001228, end: 20030623
  2. NORVASC [Concomitant]
     Route: 065
     Dates: start: 19941202
  3. MAXZIDE [Concomitant]
     Route: 065
  4. AVAPRO [Concomitant]
     Route: 065
  5. ACETAMINOPHEN AND PROPOXYPHENE NAPSYLATE [Concomitant]
     Route: 065
  6. METHYLPREDNISOLONE [Concomitant]
     Route: 065
  7. AUGMENTIN '125' [Concomitant]
     Route: 065
  8. TRIAMTERENE [Concomitant]
     Route: 065
     Dates: start: 20001204
  9. ULTRAM [Concomitant]
     Route: 065
     Dates: start: 19931026
  10. LIPITOR [Concomitant]
     Route: 065
     Dates: start: 20010913
  11. METOPROLOL [Concomitant]
     Route: 065
  12. NITROSTAT [Concomitant]
     Route: 065
  13. PLAVIX [Concomitant]
     Route: 065
     Dates: start: 20010901, end: 20011001
  14. PLAVIX [Concomitant]
     Route: 065
     Dates: start: 20020122
  15. FOLIC ACID [Concomitant]
     Route: 065
  16. XENICAL [Concomitant]
     Route: 065
  17. ISOSORBIDE [Concomitant]
     Route: 065
     Dates: start: 20020122
  18. DIOVAN [Concomitant]
     Route: 065
  19. CEPHALEXIN [Concomitant]
     Route: 065
  20. LASIX [Concomitant]
     Route: 065
     Dates: start: 20001204
  21. ZOCOR [Suspect]
     Route: 048
     Dates: start: 20020101, end: 20040509
  22. ZOCOR [Suspect]
     Route: 048
     Dates: start: 20040510, end: 20041214

REACTIONS (14)
  - CARDIOMYOPATHY [None]
  - CEREBROVASCULAR ACCIDENT [None]
  - CHEST PAIN [None]
  - CORONARY ARTERY DISEASE [None]
  - DIABETES MELLITUS [None]
  - DYSPNOEA [None]
  - FIBROMYALGIA [None]
  - GASTROOESOPHAGEAL REFLUX DISEASE [None]
  - HYPERTENSION [None]
  - MYALGIA [None]
  - MYOCARDIAL INFARCTION [None]
  - NECK PAIN [None]
  - SLEEP APNOEA SYNDROME [None]
  - VENTRICULAR TACHYCARDIA [None]
